FAERS Safety Report 7703523-2 (Version None)
Quarter: 2011Q3

REPORT INFORMATION
  Report Type: 
  Country: None (occurrence: None)
  Receive Date: 20110823
  Receipt Date: 20110818
  Transmission Date: 20111222
  Serious: Yes (Hospitalization, Other)
  Sender: FDA-Public Use
  Company Number: FR-PFIZER INC-2010111410

PATIENT
  Age: 57 Year
  Sex: Male
  Weight: 85 kg

DRUGS (9)
  1. LOVENOX [Concomitant]
     Dosage: UNK
     Route: 058
     Dates: start: 20090214
  2. ATROVENT [Concomitant]
     Dosage: UNK
     Route: 055
     Dates: start: 20090214
  3. PREDNISONE [Concomitant]
     Dosage: 5 MG, 1X/DAY
     Route: 048
     Dates: start: 20090214
  4. ATORVASTATIN CALCIUM [Concomitant]
     Dosage: 10 MG, 1X/DAY
     Route: 048
     Dates: start: 20090214
  5. NEXIUM [Concomitant]
     Dosage: UNK
     Route: 048
     Dates: start: 20090214
  6. BRICANYL [Concomitant]
     Dosage: UNK
     Route: 055
     Dates: start: 20090214
  7. NEURONTIN [Suspect]
     Indication: NEURALGIA
     Dosage: 300 MG, 3X/DAY
     Dates: end: 20090621
  8. ACUPAN [Concomitant]
     Indication: PAIN
     Dosage: 20 MG, 4X/DAY
     Route: 048
     Dates: start: 20090611
  9. NEURONTIN [Suspect]
     Dosage: 400 MG, 3X/DAY
     Dates: start: 20090622, end: 20090624

REACTIONS (5)
  - HEPATIC FAILURE [None]
  - PANCREATITIS ACUTE [None]
  - CYTOLYTIC HEPATITIS [None]
  - DISTURBANCE IN ATTENTION [None]
  - HALLUCINATION [None]
